FAERS Safety Report 24017163 (Version 2)
Quarter: 2024Q3

REPORT INFORMATION
  Report Type: Report from Study
  Country: GB (occurrence: GB)
  Receive Date: 20240627
  Receipt Date: 20240829
  Transmission Date: 20241017
  Serious: Yes (Hospitalization)
  Sender: NOVARTIS
  Company Number: GB-002147023-NVSC2024GB132443

PATIENT
  Age: 40 Year
  Sex: Female

DRUGS (1)
  1. COSENTYX [Suspect]
     Active Substance: SECUKINUMAB
     Indication: Psoriatic arthropathy
     Dosage: UNK (300 MG/ 2ML PEN)
     Route: 065
     Dates: start: 202405

REACTIONS (3)
  - Swelling face [Not Recovered/Not Resolved]
  - Infection [Unknown]
  - Decreased immune responsiveness [Unknown]
